FAERS Safety Report 5045528-9 (Version None)
Quarter: 2006Q2

REPORT INFORMATION
  Report Type: 
  Country: None (occurrence: None)
  Receive Date: 20060601
  Receipt Date: 20060411
  Transmission Date: 20061013
  Serious: No
  Sender: FDA-Public Use
  Company Number: 2006-BP-03322BP

PATIENT
  Sex: Female

DRUGS (10)
  1. SPIRIVA [Suspect]
     Indication: ASTHMA
     Dosage: 18 MCG (18 MCG, QD- AM), IH
     Route: 055
     Dates: start: 20040101
  2. SPIRIVA [Suspect]
     Indication: CHRONIC OBSTRUCTIVE PULMONARY DISEASE
     Dosage: 18 MCG (18 MCG, QD- AM), IH
     Route: 055
     Dates: start: 20040101
  3. SPIRIVA [Suspect]
  4. OXYGEN (OXYGEN) [Concomitant]
  5. ADVAIR (SERETIDE /01420901/) [Concomitant]
  6. PREDNISONE TAB [Concomitant]
  7. ALBUTEROL [Concomitant]
  8. UNIPHYL [Concomitant]
  9. ACTONEL [Concomitant]
  10. LIPITOR [Concomitant]

REACTIONS (2)
  - DYSGEUSIA [None]
  - DYSPNOEA EXACERBATED [None]
